FAERS Safety Report 15060625 (Version 13)
Quarter: 2019Q3

REPORT INFORMATION
  Report Type: Spontaneous
  Country: US (occurrence: US)
  Receive Date: 20180625
  Receipt Date: 20190930
  Transmission Date: 20191004
  Serious: Yes (Life-Threatening, Other)
  Sender: FDA-Public Use
  Company Number: US-PFIZER INC-2018254552

PATIENT
  Age: 35 Year
  Sex: Male

DRUGS (67)
  1. DILANTIN [Suspect]
     Active Substance: PHENYTOIN
     Indication: SEIZURE
     Dosage: 100 MG, 3X/DAY
     Dates: start: 20070510
  2. DILANTIN [Suspect]
     Active Substance: PHENYTOIN
     Dosage: 100 MG, 3X/DAY
     Route: 048
     Dates: start: 20160627
  3. SKELAXIN [Concomitant]
     Active Substance: METAXALONE
     Indication: PAIN
     Dosage: 800 MG, 3X/DAY
     Route: 048
     Dates: start: 20161216, end: 20170622
  4. TOPROL XL [Concomitant]
     Active Substance: METOPROLOL SUCCINATE
     Dosage: 100 MG, DAILY
     Route: 048
     Dates: end: 20170622
  5. OMEGA-3 FATTY ACIDS [Concomitant]
     Active Substance: OMEGA-3 FATTY ACIDS
     Dosage: 2000 MG, DAILY
     Route: 048
  6. LAMOTRIGINE. [Concomitant]
     Active Substance: LAMOTRIGINE
     Dosage: UNK
     Dates: start: 20170303
  7. DILANTIN [Suspect]
     Active Substance: PHENYTOIN
     Dosage: 100 MG, 2X/DAY
     Route: 048
  8. DILANTIN [Suspect]
     Active Substance: PHENYTOIN
     Dosage: 100 MG, 3X/DAY
     Route: 048
     Dates: start: 20141202
  9. DUONEB [Concomitant]
     Active Substance: ALBUTEROL SULFATE\IPRATROPIUM BROMIDE
     Dosage: 0.5 MG-2.5 MG/3ML INHALATION SOLUTION: 3ML, 4X/DAY
  10. HERBAL NERVE [Concomitant]
     Active Substance: HOPS\SCUTELLARIA LATERIFLORA\VALERIAN
     Dosage: UNK
  11. LAMICTAL [Concomitant]
     Active Substance: LAMOTRIGINE
     Dosage: 100 MG, 2X/DAY
  12. AMOXICILLIN. [Concomitant]
     Active Substance: AMOXICILLIN
     Indication: INFECTION
     Dosage: UNK
     Dates: start: 20171221
  13. GUAIFENESIN AC [Concomitant]
     Active Substance: CODEINE PHOSPHATE\GUAIFENESIN
     Indication: COUGH
     Dosage: UNK
     Dates: start: 20140205
  14. CANNABIS [Concomitant]
     Active Substance: CANNABIS SATIVA SUBSP. INDICA TOP
     Dosage: UNK
     Dates: start: 2011, end: 2016
  15. DILANTIN [Suspect]
     Active Substance: PHENYTOIN
     Dosage: UNK
     Route: 048
     Dates: start: 2010, end: 2015
  16. DILANTIN [Suspect]
     Active Substance: PHENYTOIN
     Dosage: 100 MG, 3X/DAY
     Route: 048
     Dates: start: 20150518
  17. KLONOPIN [Concomitant]
     Active Substance: CLONAZEPAM
     Dosage: UNK
  18. VALIUM [Concomitant]
     Active Substance: DIAZEPAM
     Dosage: UNK
  19. LOPRESSOR [Concomitant]
     Active Substance: METOPROLOL TARTRATE
     Dosage: 50 MG, 2X/DAY
     Route: 048
  20. MILK OF MAGNESIA [Concomitant]
     Active Substance: MAGNESIUM HYDROXIDE
     Indication: CONSTIPATION
     Dosage: 15 ML - 30 ML
     Route: 048
  21. LAMICTAL [Concomitant]
     Active Substance: LAMOTRIGINE
     Dosage: 75 MG, 2X/DAY
  22. LAMICTAL [Concomitant]
     Active Substance: LAMOTRIGINE
     Dosage: 150 MG, 2X/DAY
     Dates: end: 201708
  23. DILANTIN [Suspect]
     Active Substance: PHENYTOIN
     Dosage: 100 MG, 3X/DAY
     Dates: start: 20070820
  24. DILANTIN [Suspect]
     Active Substance: PHENYTOIN
     Dosage: UNK
     Dates: start: 1987, end: 1988
  25. DILANTIN [Suspect]
     Active Substance: PHENYTOIN
     Dosage: 100 MG, 3X/DAY
     Route: 048
     Dates: start: 20140204
  26. TYLENOL [Concomitant]
     Active Substance: ACETAMINOPHEN
     Indication: PYREXIA
     Dosage: 325 MG - 650 MG
     Route: 048
  27. LAMICTAL [Concomitant]
     Active Substance: LAMOTRIGINE
     Dosage: 50 MG, 2X/DAY
  28. VIMPAT [Concomitant]
     Active Substance: LACOSAMIDE
     Dosage: UNK
     Dates: start: 20170705
  29. LAMOTRIGINE. [Concomitant]
     Active Substance: LAMOTRIGINE
     Indication: SEIZURE
     Dosage: UNK
     Dates: start: 20170303
  30. METHYL CPG [Concomitant]
     Active Substance: BETAINE\FOLIC ACID\METHYLCOBALAMIN\PYRIDOXINE\RIBOFLAVIN
     Dosage: UNK, 1X/DAY
     Route: 048
  31. SENOKOT [Concomitant]
     Active Substance: SENNOSIDES
     Indication: CONSTIPATION
     Dosage: 8.5 MG, UNK
     Route: 048
  32. ALBUTEROL SULFATE. [Concomitant]
     Active Substance: ALBUTEROL SULFATE
     Indication: ASTHMA
     Dosage: UNK
     Dates: start: 20090304, end: 20150518
  33. HYDROCODONE/ACETAMINOPHEN [Concomitant]
     Active Substance: ACETAMINOPHEN\HYDROCODONE
     Indication: PAIN
     Dosage: UNK, (STENGTH: 5-325 MG)
     Dates: start: 20110816, end: 20171221
  34. VENTOLIN HFA [Concomitant]
     Active Substance: ALBUTEROL SULFATE
     Indication: ASTHMA
     Dosage: UNK
     Dates: start: 20110817, end: 20150518
  35. DILANTIN [Suspect]
     Active Substance: PHENYTOIN
     Dosage: 100 MG, 3X/DAY
     Route: 048
     Dates: start: 20141110
  36. DILANTIN [Suspect]
     Active Substance: PHENYTOIN
     Indication: SEIZURE
     Dosage: 1000 MG (20 ML) ONE TIME STAT FOR 1 DOSE, MIXED WITH 250 ML NORMAL SALINE, OVER 30 MINS
     Route: 042
  37. GINKOBA [Concomitant]
     Active Substance: GINKGO
     Dosage: UNK
     Dates: end: 20170622
  38. VENTOLIN [Concomitant]
     Active Substance: ALBUTEROL SULFATE
     Dosage: UNK, WEEKLY
  39. LORAZEPAM. [Concomitant]
     Active Substance: LORAZEPAM
     Dosage: 0.5 MG, UNK
     Route: 042
  40. PHENERGAN [Concomitant]
     Active Substance: PROMETHAZINE HYDROCHLORIDE
     Dosage: 12.5 MG, UNK
     Route: 042
  41. MAALOX PLUS EXTRA STRENGTH [Concomitant]
     Dosage: 15 ML - 30 ML
     Route: 048
  42. DSS [Concomitant]
     Active Substance: DEXTRAN SULFATE SODIUM
     Indication: CONSTIPATION
     Dosage: 100 MG, 2X/DAY
  43. METOPROLOL. [Concomitant]
     Active Substance: METOPROLOL
     Dosage: 50 MG, UNK (1 TAB IN MORNING, 2 TABS AT NIGHT)
     Dates: start: 20070820
  44. METAXALONE. [Concomitant]
     Active Substance: METAXALONE
     Indication: MUSCLE RELAXANT THERAPY
     Dosage: UNK
     Dates: start: 20161220
  45. MARIJUANA [Concomitant]
     Active Substance: CANNABIS SATIVA SUBSP. INDICA TOP
     Dosage: UNK
     Dates: start: 2011, end: 2016
  46. DILANTIN [Suspect]
     Active Substance: PHENYTOIN
     Indication: EPILEPSY
     Dosage: UNK
     Dates: start: 2000
  47. DILANTIN [Suspect]
     Active Substance: PHENYTOIN
     Dosage: 100 MG, 3X/DAY
     Route: 048
     Dates: start: 20110119
  48. DILANTIN [Suspect]
     Active Substance: PHENYTOIN
     Dosage: 100 MG, 3X/DAY
     Route: 048
     Dates: start: 20120611
  49. DILANTIN [Suspect]
     Active Substance: PHENYTOIN
     Indication: EPILEPSY
     Dosage: 500 MG (10 ML) ONE TIME STAT FOR 1 DOSE, MIXED WITH 250 ML NORMAL SALINE, OVER 30 MINS
     Route: 042
  50. DILANTIN [Suspect]
     Active Substance: PHENYTOIN
     Dosage: 100 MG, DAILY
     Route: 048
  51. ATIVAN [Concomitant]
     Active Substance: LORAZEPAM
     Dosage: UNK
     Dates: start: 20070415
  52. METOPROLOL TARTRATE. [Concomitant]
     Active Substance: METOPROLOL TARTRATE
     Indication: ESSENTIAL HYPERTENSION
     Dosage: 100 MG, 3X/DAY
     Route: 048
     Dates: start: 20110427, end: 20170405
  53. VITAMIN D 5000 [Concomitant]
     Dosage: 5000 IU, DAILY
     Route: 048
  54. DULCOLAX NOS [Concomitant]
     Active Substance: BISACODYL OR DOCUSATE SODIUM
     Indication: CONSTIPATION
     Dosage: 10 MG, AS NEEDED
     Route: 054
  55. VIMPAT [Concomitant]
     Active Substance: LACOSAMIDE
     Indication: SEIZURE
     Dosage: UNK
     Dates: start: 20170625, end: 201708
  56. IBUPROFEN. [Concomitant]
     Active Substance: IBUPROFEN
     Indication: PAIN
     Dosage: UNK
     Dates: start: 20160519
  57. DILANTIN [Suspect]
     Active Substance: PHENYTOIN
     Dosage: 100 MG, 3X/DAY
     Route: 048
     Dates: start: 20130422
  58. DILANTIN [Suspect]
     Active Substance: PHENYTOIN
     Dosage: UNK, THERAPY DATE IN EARLY 1990^S)
  59. DILANTIN [Suspect]
     Active Substance: PHENYTOIN
     Dosage: UNK
     Dates: start: 2005, end: 201701
  60. ST. JOHN^S WORT [Concomitant]
     Active Substance: ST. JOHN^S WORT
     Dosage: UNK
  61. METOPROLOL TARTRATE. [Concomitant]
     Active Substance: METOPROLOL TARTRATE
     Indication: CHEST PAIN
  62. NS BOLUS [Concomitant]
     Dosage: UNK
     Route: 042
  63. MAGNESIUM [Concomitant]
     Active Substance: MAGNESIUM
     Dosage: UNK
  64. TYLENOL [Concomitant]
     Active Substance: ACETAMINOPHEN
     Indication: PAIN
  65. LAMICTAL [Concomitant]
     Active Substance: LAMOTRIGINE
     Indication: SEIZURE
     Dosage: 25 MG, 2X/DAY
     Dates: start: 20170303
  66. ACETAMINOPHEN AND CODEINE [Concomitant]
     Active Substance: ACETAMINOPHEN\CODEINE PHOSPHATE
     Indication: PAIN
     Dosage: UNK
     Dates: start: 20160512, end: 20171205
  67. CEPHALEXINE [Concomitant]
     Active Substance: CEPHALEXIN
     Indication: INFECTION
     Dosage: UNK
     Dates: start: 20160512

REACTIONS (19)
  - Ataxia [Not Recovered/Not Resolved]
  - Cognitive disorder [Not Recovered/Not Resolved]
  - Affective disorder [Not Recovered/Not Resolved]
  - Loss of personal independence in daily activities [Not Recovered/Not Resolved]
  - Cerebellar atrophy [Not Recovered/Not Resolved]
  - Neuropathy peripheral [Not Recovered/Not Resolved]
  - Depression [Not Recovered/Not Resolved]
  - Speech disorder [Not Recovered/Not Resolved]
  - Dizziness [Not Recovered/Not Resolved]
  - Photosensitivity reaction [Recovered/Resolved]
  - Hyponatraemia [Unknown]
  - Amnesia [Not Recovered/Not Resolved]
  - Gait disturbance [Not Recovered/Not Resolved]
  - Movement disorder [Not Recovered/Not Resolved]
  - Asthenia [Not Recovered/Not Resolved]
  - Multiple system atrophy [Unknown]
  - Dysarthria [Not Recovered/Not Resolved]
  - Muscle spasms [Not Recovered/Not Resolved]
  - Balance disorder [Not Recovered/Not Resolved]

NARRATIVE: CASE EVENT DATE: 20070413
